FAERS Safety Report 13513668 (Version 2)
Quarter: 2017Q2

REPORT INFORMATION
  Report Type: Spontaneous
  Country: IT (occurrence: IT)
  Receive Date: 20170504
  Receipt Date: 20170511
  Transmission Date: 20170830
  Serious: Yes (Other)
  Sender: FDA-Public Use
  Company Number: IT-ACCORD-050990

PATIENT
  Age: 73 Year
  Sex: Female

DRUGS (2)
  1. CAPECITABINE. [Concomitant]
     Active Substance: CAPECITABINE
     Indication: PRODUCT USED FOR UNKNOWN INDICATION
     Route: 048
     Dates: start: 20170317, end: 20170331
  2. OXALIPLATIN. [Suspect]
     Active Substance: OXALIPLATIN
     Indication: ADENOCARCINOMA OF COLON
     Route: 042
     Dates: start: 20170317, end: 20170407

REACTIONS (2)
  - Dysphonia [Recovered/Resolved]
  - Laryngospasm [Recovered/Resolved]

NARRATIVE: CASE EVENT DATE: 20170407
